FAERS Safety Report 12669015 (Version 2)
Quarter: 2016Q3

REPORT INFORMATION
  Report Type: Report from Study
  Country: CA (occurrence: CA)
  Receive Date: 20160819
  Receipt Date: 20160917
  Transmission Date: 20161109
  Serious: Yes (Disabling, Other)
  Sender: FDA-Public Use
  Company Number: CA-AMGEN-CANSL2016106848

PATIENT
  Age: 72 Year
  Sex: Female
  Weight: 40.82 kg

DRUGS (4)
  1. PROLIA [Suspect]
     Active Substance: DENOSUMAB
     Indication: OSTEOPOROSIS
     Dosage: 60 MG/ML, UNK
     Route: 065
     Dates: start: 20140327
  2. RALOXIFENE. [Concomitant]
     Active Substance: RALOXIFENE
  3. VITAMIN D [Concomitant]
     Active Substance: CHOLECALCIFEROL
  4. PANTOPRAZOLE [Concomitant]
     Active Substance: PANTOPRAZOLE SODIUM

REACTIONS (3)
  - Abasia [Unknown]
  - Back pain [Recovered/Resolved]
  - Renal pain [Recovered/Resolved]
